FAERS Safety Report 16188275 (Version 5)
Quarter: 2021Q3

REPORT INFORMATION
  Report Type: Report from Study
  Country: None (occurrence: AR)
  Receive Date: 20190412
  Receipt Date: 20210902
  Transmission Date: 20211014
  Serious: Yes (Other)
  Sender: FDA-Public Use
  Company Number: AR-ABBVIE-18K-007-2569407-00

PATIENT
  Age: 77 Year
  Sex: Female

DRUGS (2)
  1. HUMIRA [Suspect]
     Active Substance: ADALIMUMAB
     Indication: RHEUMATOID ARTHRITIS
     Route: 058
     Dates: start: 20130926, end: 202008
  2. OSTEODYN [Concomitant]
     Indication: PRODUCT USED FOR UNKNOWN INDICATION

REACTIONS (16)
  - Anal incontinence [Unknown]
  - Anxiety [Unknown]
  - Headache [Not Recovered/Not Resolved]
  - Drug ineffective [Not Recovered/Not Resolved]
  - Rheumatoid arthritis [Not Recovered/Not Resolved]
  - Deafness unilateral [Unknown]
  - Hernia [Unknown]
  - Stress [Not Recovered/Not Resolved]
  - Fall [Recovering/Resolving]
  - Rib fracture [Recovering/Resolving]
  - Emotional distress [Recovering/Resolving]
  - Injury [Unknown]
  - Urinary incontinence [Recovering/Resolving]
  - Depression [Recovering/Resolving]
  - Amnesia [Recovered/Resolved]
  - Hypoacusis [Not Recovered/Not Resolved]

NARRATIVE: CASE EVENT DATE: 2018
